FAERS Safety Report 7999464-6 (Version None)
Quarter: 2011Q4

REPORT INFORMATION
  Report Type: 
  Country: None (occurrence: None)
  Receive Date: 20111221
  Receipt Date: 20111219
  Transmission Date: 20120403
  Serious: No
  Sender: FDA-Public Use
  Company Number: US-PFIZER INC-2011307987

PATIENT
  Sex: Female
  Weight: 72.562 kg

DRUGS (6)
  1. ALLEGRA [Concomitant]
     Indication: ALLERGIC RESPIRATORY DISEASE
     Dosage: UNK
  2. LYRICA [Suspect]
     Indication: NEUROPATHY PERIPHERAL
     Dosage: 50 MG, 2X/DAY
     Route: 048
     Dates: start: 20111202
  3. SYNTHROID [Concomitant]
     Indication: HYPOTHYROIDISM
     Dosage: 100 UG, UNK
  4. LYRICA [Suspect]
     Indication: JOINT INJURY
  5. LYRICA [Suspect]
     Indication: MUSCLE INJURY
  6. BENICAR [Concomitant]
     Indication: HYPERTENSION
     Dosage: 5 MG, UNK

REACTIONS (1)
  - OEDEMA PERIPHERAL [None]
